FAERS Safety Report 4815606-5 (Version None)
Quarter: 2005Q4

REPORT INFORMATION
  Report Type: 
  Country: None (occurrence: None)
  Receive Date: 20051027
  Receipt Date: 20051014
  Transmission Date: 20060501
  Serious: Yes (Other)
  Sender: FDA-Public Use
  Company Number: 2005143208

PATIENT
  Age: 78 Year
  Sex: Female

DRUGS (4)
  1. BENADRYL [Suspect]
     Dosage: ORAL
     Route: 048
  2. DESLORATADINE (DESLORATADINE) [Suspect]
     Dosage: ONE TAB DAILY, ORAL
     Route: 048
  3. SIMVASTATIN [Suspect]
     Dosage: 10 MG DAILY, ORAL
     Route: 048
  4. SIMVASTATIN [Concomitant]

REACTIONS (3)
  - DIFFICULTY IN WALKING [None]
  - MYALGIA [None]
  - RASH [None]
